FAERS Safety Report 5990046-4 (Version None)
Quarter: 2008Q4

REPORT INFORMATION
  Report Type: 
  Country: None (occurrence: None)
  Receive Date: 20081210
  Receipt Date: 20081124
  Transmission Date: 20090506
  Serious: Yes (Hospitalization)
  Sender: FDA-Public Use
  Company Number: KV200800508

PATIENT
  Age: 68 Year
  Sex: Female
  Weight: 97.5 kg

DRUGS (19)
  1. ISOSORBIDE DINITRATE [Suspect]
     Indication: CARDIAC DISORDER
     Dosage: 60 MG, QD, ORAL
     Route: 048
     Dates: start: 20080101
  2. LORTAB [Concomitant]
  3. NEXIUM [Concomitant]
  4. ATROVENT [Concomitant]
  5. ALBUTEROL [Concomitant]
  6. ADVAIR DISKUS 100/50 [Concomitant]
  7. SINGULAIR [Concomitant]
  8. NITROQUICK (GLYCERYL TRINITRATE) [Concomitant]
  9. DIOVAN [Concomitant]
  10. NORVASC [Concomitant]
  11. LASIX [Concomitant]
  12. ZANAFLEX [Concomitant]
  13. ELAVIL [Concomitant]
  14. LEXAPRO [Concomitant]
  15. RANEXA (RANOLAZINE) [Concomitant]
  16. LODRANE (BROMPHENIRAMINE MALEATE, PSEUDOEPHEDRINE HYDROCHLORIDE) [Concomitant]
  17. VYTORIN [Concomitant]
  18. ASPIRIN [Concomitant]
  19. PLAVIX [Concomitant]

REACTIONS (4)
  - ABDOMINAL PAIN UPPER [None]
  - PRODUCT QUALITY ISSUE [None]
  - URETERAL DISORDER [None]
  - URINE ABNORMALITY [None]
